FAERS Safety Report 20219815 (Version 1)
Quarter: 2021Q4

REPORT INFORMATION
  Report Type: Spontaneous
  Country: US (occurrence: US)
  Receive Date: 20211222
  Receipt Date: 20211222
  Transmission Date: 20220303
  Serious: No
  Sender: FDA-Public Use
  Company Number: US-UPSHER-SMITH LABORATORIES, LLC-2021USL00616

PATIENT
  Sex: Female
  Weight: 74.843 kg

DRUGS (2)
  1. KLOR-CON M [Suspect]
     Active Substance: POTASSIUM CHLORIDE
     Indication: Electrolyte substitution therapy
     Dosage: 20 MEQ
     Route: 048
  2. UNSPECIFIED DIURETIC WHICH DEPLETES POTASSIUM [Concomitant]

REACTIONS (2)
  - Choking [Recovered/Resolved]
  - Product use complaint [Not Recovered/Not Resolved]
